FAERS Safety Report 7830765-8 (Version None)
Quarter: 2011Q4

REPORT INFORMATION
  Report Type: 
  Country: None (occurrence: None)
  Receive Date: 20111021
  Receipt Date: 20111012
  Transmission Date: 20120403
  Serious: Yes (Hospitalization)
  Sender: FDA-Public Use
  Company Number: US-GLAXOSMITHKLINE-A0867030A

PATIENT
  Age: 46 Year
  Sex: Female
  Weight: 65 kg

DRUGS (6)
  1. TOPROL-XL [Concomitant]
  2. AVANDAMET [Suspect]
     Indication: DIABETES MELLITUS
     Dosage: 1TAB TWICE PER DAY
     Route: 048
     Dates: start: 20030101, end: 20070701
  3. AVANDIA [Suspect]
     Indication: DIABETES MELLITUS
     Dosage: 4MG PER DAY
     Route: 048
  4. ATENOLOL [Concomitant]
     Dates: end: 20060804
  5. LIPITOR [Concomitant]
  6. ASPIRIN [Concomitant]
     Dates: end: 20060804

REACTIONS (3)
  - CARDIAC FAILURE [None]
  - ANGIOEDEMA [None]
  - MYOCARDIAL INFARCTION [None]
